FAERS Safety Report 7135436-1 (Version None)
Quarter: 2010Q4

REPORT INFORMATION
  Report Type: 
  Country: None (occurrence: None)
  Receive Date: 20101119
  Receipt Date: 20101108
  Transmission Date: 20110411
  Serious: Yes (Hospitalization)
  Sender: FDA-Public Use
  Company Number: 1000017248

PATIENT
  Age: 46 Year
  Sex: Male
  Weight: 99.79 kg

DRUGS (5)
  1. DILTIAZEM HCL [Suspect]
  2. PROPAFENONE HCL [Suspect]
     Indication: ATRIAL FIBRILLATION
     Dosage: 650 MG (325 MG, 2 IN 1 D), 850 MG (425 MG, 2 IN 1 D)
  3. SIMVASTATIN [Suspect]
  4. METOPROLOL SUCCINATE [Suspect]
  5. ALCOHOL (ETHANOL) [Suspect]

REACTIONS (14)
  - ASPARTATE AMINOTRANSFERASE INCREASED [None]
  - ATRIAL FIBRILLATION [None]
  - ATRIAL FLUTTER [None]
  - BUNDLE BRANCH BLOCK LEFT [None]
  - DYSPNOEA EXERTIONAL [None]
  - ELECTROCARDIOGRAM QRS COMPLEX PROLONGED [None]
  - FALL [None]
  - LEFT VENTRICULAR DYSFUNCTION [None]
  - LEFT VENTRICULAR HYPERTROPHY [None]
  - QRS AXIS ABNORMAL [None]
  - SKIN LACERATION [None]
  - SUBDURAL HAEMATOMA [None]
  - SYNCOPE [None]
  - VENTRICULAR TACHYCARDIA [None]
